FAERS Safety Report 17547104 (Version 3)
Quarter: 2020Q2

REPORT INFORMATION
  Report Type: Report from Study
  Country: PL (occurrence: PL)
  Receive Date: 20200316
  Receipt Date: 20200514
  Transmission Date: 20200713
  Serious: Yes (Life-Threatening, Hospitalization)
  Sender: FDA-Public Use
  Company Number: NVSC2020PL074643

PATIENT
  Age: 44 Year
  Sex: Female
  Weight: 66 kg

DRUGS (11)
  1. XARELTO [Concomitant]
     Active Substance: RIVAROXABAN
     Dosage: 20 MG
     Route: 048
     Dates: start: 20200330
  2. NEDAL [Concomitant]
     Active Substance: NEBIVOLOL HYDROCHLORIDE
     Indication: PROPHYLAXIS
     Dosage: 5 MG
     Route: 048
     Dates: start: 20200207
  3. XARELTO [Concomitant]
     Active Substance: RIVAROXABAN
     Indication: DEEP VEIN THROMBOSIS
     Dosage: 30 MG
     Route: 048
     Dates: start: 20200309, end: 20200329
  4. THYROZOL [Concomitant]
     Active Substance: METHIMAZOLE
     Indication: HYPERTHYROIDISM
     Dosage: 5 MG
     Route: 048
     Dates: start: 201806, end: 20200303
  5. LEE011 [Suspect]
     Active Substance: RIBOCICLIB
     Indication: BREAST CANCER
     Dosage: 400 MG
     Route: 048
     Dates: start: 20191218, end: 20200303
  6. ETRUZIL [Concomitant]
     Active Substance: LETROZOLE
     Indication: BREAST CANCER
     Dosage: 2.5 MG
     Route: 065
     Dates: start: 20191108, end: 20191217
  7. RESELIGO [Concomitant]
     Active Substance: GOSERELIN ACETATE
     Indication: BREAST CANCER
     Dosage: 3.6 MG
     Route: 065
     Dates: start: 20191108, end: 20191206
  8. LETROZOLE. [Suspect]
     Active Substance: LETROZOLE
     Indication: BREAST CANCER
     Dosage: 2.5 MG
     Route: 048
     Dates: start: 20191218
  9. GOSERELIN [Suspect]
     Active Substance: GOSERELIN
     Indication: BREAST CANCER
     Dosage: 3.6 MG
     Route: 058
     Dates: start: 20200102
  10. TAMOXIFEN [Concomitant]
     Active Substance: TAMOXIFEN
     Indication: BREAST CANCER
     Dosage: 20 MG
     Route: 065
     Dates: start: 20190923, end: 20191107
  11. THYROZOL [Concomitant]
     Active Substance: METHIMAZOLE
     Dosage: UNK
     Route: 048
     Dates: start: 20200303

REACTIONS (1)
  - Pulmonary embolism [Recovered/Resolved]

NARRATIVE: CASE EVENT DATE: 20200303
